FAERS Safety Report 7960764 (Version 4)
Quarter: 2013Q2

REPORT INFORMATION
  Report Type: Spontaneous
  Country: US (occurrence: US)
  Receive Date: 20110525
  Receipt Date: 20130524
  Transmission Date: 20140414
  Serious: Yes (Life-Threatening, Hospitalization, Disabling, Congenital Anomaly, Other)
  Sender: FDA-Public Use
  Company Number: US-PFIZER INC-2011105857

PATIENT
  Sex: Male
  Weight: 2.9 kg

DRUGS (15)
  1. EFFEXOR XR [Suspect]
     Indication: DEPRESSION
     Dosage: 150 MG, UNK
     Route: 064
     Dates: start: 20041101
  2. EFFEXOR XR [Suspect]
     Dosage: 125 MG, EVERY DAY
     Route: 064
     Dates: start: 20050606
  3. EFFEXOR XR [Suspect]
     Dosage: 150 MG, UNK
     Route: 064
     Dates: start: 20050617
  4. EFFEXOR [Suspect]
     Indication: DEPRESSION
     Dosage: 75 MG, EVERY DAY
     Route: 064
     Dates: start: 20051213
  5. VENLAFAXINE HCL [Suspect]
     Dosage: UNK
     Route: 064
  6. FIORINAL [Concomitant]
     Indication: CLUSTER HEADACHE
     Dosage: UNK
     Route: 064
  7. FIORICET [Concomitant]
     Dosage: UNK, EVERY 4-6 PM
     Route: 064
  8. REGLAN [Concomitant]
     Dosage: 10 MG, EVERY 6 PM
     Route: 064
  9. RESTORIL [Concomitant]
     Dosage: UNK
     Route: 064
  10. DARVOCET [Concomitant]
     Indication: PAIN
     Dosage: UNK, 1X/DAY
     Route: 064
  11. PRILOSEC [Concomitant]
     Dosage: UNK
     Route: 064
  12. PROCARDIA [Concomitant]
     Indication: PAIN
     Dosage: 10 OR 20 MG INITIALLY IN THE MORNING
     Route: 064
  13. PROCARDIA [Concomitant]
     Dosage: 10 MG, EVERY FOUR HOURS
  14. TYLENOL [Concomitant]
     Indication: PAIN
     Dosage: UNK
     Route: 064
  15. AZITHROMYCIN [Concomitant]
     Indication: PNEUMONIA
     Dosage: UNK
     Route: 064
     Dates: start: 20060105

REACTIONS (36)
  - Maternal exposure timing unspecified [Unknown]
  - Anomalous pulmonary venous connection [Recovering/Resolving]
  - Pneumonia [Recovering/Resolving]
  - Feeding disorder neonatal [Unknown]
  - Bronchiolitis [Recovering/Resolving]
  - Pneumonia viral [Not Recovered/Not Resolved]
  - Respiratory distress [Not Recovered/Not Resolved]
  - Hypoxia [Not Recovered/Not Resolved]
  - Viral upper respiratory tract infection [Recovered/Resolved]
  - Asthma [Unknown]
  - Conjunctivitis [Unknown]
  - Lethargy [Unknown]
  - Ductus arteriosus stenosis foetal [Recovering/Resolving]
  - Atrial septal defect [Recovering/Resolving]
  - Pulmonary artery stenosis congenital [Not Recovered/Not Resolved]
  - Kawasaki^s disease [Recovering/Resolving]
  - Ventricular septal defect [Recovering/Resolving]
  - Intraventricular haemorrhage [Unknown]
  - Pulmonary veno-occlusive disease [Recovered/Resolved]
  - Positional plagiocephaly [Unknown]
  - Atrial tachycardia [Recovering/Resolving]
  - Ventricular tachycardia [Recovering/Resolving]
  - Pulmonary oedema [Unknown]
  - Candida infection [Unknown]
  - Pulmonary hypertension [Unknown]
  - Arrhythmia [Recovering/Resolving]
  - Cardiomegaly [Unknown]
  - Atelectasis [Not Recovered/Not Resolved]
  - Angioedema [Unknown]
  - Tricuspid valve incompetence [Not Recovered/Not Resolved]
  - Sick sinus syndrome [Unknown]
  - Sleep apnoea syndrome [Unknown]
  - Urticaria [Unknown]
  - Congenital anomaly [Unknown]
  - Diarrhoea [Recovering/Resolving]
  - Gastrooesophageal reflux disease [Recovering/Resolving]
